FAERS Safety Report 7734682-3 (Version None)
Quarter: 2011Q3

REPORT INFORMATION
  Report Type: 
  Country: None (occurrence: None)
  Receive Date: 20110907
  Receipt Date: 20110830
  Transmission Date: 20111222
  Serious: Yes (Death, Hospitalization)
  Sender: FDA-Public Use
  Company Number: US-ACTELION-A-US2011-52306

PATIENT

DRUGS (3)
  1. REVATIO [Concomitant]
  2. COUMADIN [Concomitant]
  3. TRACLEER [Suspect]
     Indication: PULMONARY ARTERIAL HYPERTENSION
     Dosage: UNK
     Route: 048
     Dates: start: 20110125, end: 20110802

REACTIONS (5)
  - DYSPNOEA [None]
  - UNRESPONSIVE TO STIMULI [None]
  - HYPOXIA [None]
  - RESPIRATORY FAILURE [None]
  - CARBON DIOXIDE INCREASED [None]
